FAERS Safety Report 9034679 (Version 1)
Quarter: 2013Q1

REPORT INFORMATION
  Report Type: Spontaneous
  Country: US (occurrence: None)
  Receive Date: 20130116
  Receipt Date: 20130116
  Transmission Date: 20140127
  Serious: No
  Sender: FDA-Public Use
  Company Number: None

PATIENT
  Age: 61 Year
  Sex: Female

DRUGS (1)
  1. CLONAZEPAM [Suspect]
     Indication: ANXIETY
     Route: 048

REACTIONS (4)
  - Product substitution issue [None]
  - Agitation [None]
  - Product formulation issue [None]
  - Product quality issue [None]
